FAERS Safety Report 4757452-7 (Version None)
Quarter: 2005Q3

REPORT INFORMATION
  Report Type: 
  Country: None (occurrence: None)
  Receive Date: 20050831
  Receipt Date: 20050819
  Transmission Date: 20060218
  Serious: Yes (Life-Threatening)
  Sender: FDA-Public Use
  Company Number: FI-ROCHE-414889

PATIENT
  Age: 75 Year
  Sex: Female

DRUGS (5)
  1. XELODA [Suspect]
     Route: 048
     Dates: start: 20050728, end: 20050808
  2. LISINOPRIL [Concomitant]
     Dates: start: 20041215
  3. ADALAT [Concomitant]
     Dates: start: 20041215
  4. ACETAMINOPHEN [Concomitant]
     Dates: start: 20050715
  5. 1 CONCOMITANT DRUG [Concomitant]
     Dosage: DRUG REPORTED AS 'ORAL BALANCE GEL (GLOCOSE OXIDASE, LACTOPEROXIDASE, XYLITOL, LACTOFERRIN, LYSOZYM+
     Dates: start: 20050715

REACTIONS (5)
  - CHOKING SENSATION [None]
  - DYSPNOEA [None]
  - OEDEMA MUCOSAL [None]
  - SPEECH DISORDER [None]
  - SWOLLEN TONGUE [None]
